FAERS Safety Report 5371661-8 (Version None)
Quarter: 2007Q2

REPORT INFORMATION
  Report Type: 
  Country: None (occurrence: None)
  Receive Date: 20070627
  Receipt Date: 20070625
  Transmission Date: 20071010
  Serious: Yes (Life-Threatening, Hospitalization)
  Sender: FDA-Public Use
  Company Number: PHBS2007ES10590

PATIENT
  Age: 80 Year
  Sex: Female

DRUGS (3)
  1. FAMVIR [Suspect]
     Indication: HERPES ZOSTER
     Dosage: 750 MG, UNK
     Route: 048
     Dates: start: 20070121, end: 20070128
  2. NOLOTIL [Suspect]
     Dosage: 1.7 G, UNK
     Dates: start: 20070121, end: 20070128
  3. OLMETEC [Concomitant]
     Dosage: 10 MG, UNK

REACTIONS (1)
  - AGRANULOCYTOSIS [None]
